FAERS Safety Report 19494686 (Version 1)
Quarter: 2021Q3

REPORT INFORMATION
  Report Type: Spontaneous
  Country: AT (occurrence: AT)
  Receive Date: 20210705
  Receipt Date: 20210705
  Transmission Date: 20211014
  Serious: Yes (Death, Other)
  Sender: FDA-Public Use
  Company Number: AT-ANIPHARMA-2021-AT-000015

PATIENT
  Sex: Female

DRUGS (11)
  1. VITAMINS WITH MINERALS [Suspect]
     Active Substance: MINERALS\VITAMINS
     Route: 065
     Dates: start: 202007
  2. CAPECITABINE. [Suspect]
     Active Substance: CAPECITABINE
     Route: 048
  3. LASILACTON [Concomitant]
     Active Substance: FUROSEMIDE\SPIRONOLACTONE
     Dosage: QD (20/50 MG)
     Route: 065
     Dates: start: 202012
  4. DENOSUMAB [Concomitant]
     Active Substance: DENOSUMAB
     Route: 065
     Dates: start: 202007
  5. BEVACIZUMAB. [Concomitant]
     Active Substance: BEVACIZUMAB
     Route: 065
  6. SONKE TENOFOVIR [Concomitant]
     Route: 065
     Dates: start: 201911
  7. RIBOCICLIB. [Suspect]
     Active Substance: RIBOCICLIB
     Dosage: 200 MG UNK
     Route: 065
     Dates: start: 201911
  8. GOSERELINE [Concomitant]
     Active Substance: GOSERELIN
     Route: 065
     Dates: start: 201911
  9. PIQRAY [Suspect]
     Active Substance: ALPELISIB
     Dosage: 150 MG UNK
     Route: 065
     Dates: start: 202012
  10. ANASTROZOLE. [Suspect]
     Active Substance: ANASTROZOLE
     Indication: BREAST CANCER METASTATIC
     Route: 048
     Dates: start: 201911
  11. FULVESTRANT. [Suspect]
     Active Substance: FULVESTRANT
     Route: 065
     Dates: start: 202012

REACTIONS (10)
  - Jaundice [Unknown]
  - Confusional state [Fatal]
  - Hepatic cirrhosis [Unknown]
  - Metastasis [Fatal]
  - Metastases to liver [Unknown]
  - Ascites [Unknown]
  - Liver function test increased [Unknown]
  - Blood glucose fluctuation [Unknown]
  - General physical health deterioration [Unknown]
  - Metastases to bone [Unknown]

NARRATIVE: CASE EVENT DATE: 202007
